FAERS Safety Report 5164255-0 (Version None)
Quarter: 2006Q4

REPORT INFORMATION
  Report Type: 
  Country: None (occurrence: None)
  Receive Date: 20060918
  Receipt Date: 20051129
  Transmission Date: 20070319
  Serious: Yes (Other)
  Sender: FDA-Public Use
  Company Number: US-JNJFOC-20051002913

PATIENT
  Age: 45 Year
  Sex: Male
  Weight: 68.0396 kg

DRUGS (2)
  1. TOPAMAX [Suspect]
     Indication: MIGRAINE
     Dosage: 50 MG, 2 IN 1 DAY, ORAL
     Route: 048
     Dates: start: 20051007
  2. AMBIEN [Concomitant]

REACTIONS (3)
  - AFFECT LABILITY [None]
  - DEPRESSION [None]
  - SUICIDAL IDEATION [None]
